FAERS Safety Report 8139290-0 (Version None)
Quarter: 2012Q1

REPORT INFORMATION
  Report Type: 
  Country: None (occurrence: None)
  Receive Date: 20120215
  Receipt Date: 20110408
  Transmission Date: 20120608
  Serious: No
  Sender: FDA-Public Use
  Company Number: US-MYLANLABS-2011S1007535

PATIENT
  Age: 69 Year
  Sex: Female
  Weight: 74.84 kg

DRUGS (3)
  1. ALPRAZOLAM [Suspect]
     Route: 048
     Dates: start: 20110101
  2. PULMICORT-100 [Concomitant]
  3. ERYTHROMYCIN [Concomitant]

REACTIONS (2)
  - OLIGURIA [None]
  - OEDEMA PERIPHERAL [None]
